FAERS Safety Report 5570366-8 (Version None)
Quarter: 2007Q4

REPORT INFORMATION
  Report Type: 
  Country: None (occurrence: None)
  Receive Date: 20071219
  Receipt Date: 20071219
  Transmission Date: 20080405
  Serious: Yes (Other)
  Sender: FDA-Public Use
  Company Number: None

PATIENT
  Age: 60 Year
  Sex: Female
  Weight: 72.5755 kg

DRUGS (1)
  1. CATAPRES-TTS-1 [Suspect]
     Indication: HYPERTENSION
     Dosage: DELIVERS IN VIVO 0.1 MG PER DA 1 PATCH A WEEK
     Dates: start: 20071119, end: 20071217

REACTIONS (3)
  - HYPERTENSION [None]
  - MUSCLE SPASMS [None]
  - MUSCULAR WEAKNESS [None]
